FAERS Safety Report 4964890-6 (Version None)
Quarter: 2006Q2

REPORT INFORMATION
  Report Type: 
  Country: None (occurrence: None)
  Receive Date: 20060403
  Receipt Date: 20060320
  Transmission Date: 20061013
  Serious: Yes (Other)
  Sender: FDA-Public Use
  Company Number: 2006S1000062

PATIENT
  Age: 38 Year
  Sex: Male

DRUGS (1)
  1. SORIATANE [Suspect]
     Indication: PSORIASIS
     Dosage: PO
     Route: 048

REACTIONS (1)
  - SPERMATOGENESIS ABNORMAL [None]
